FAERS Safety Report 6248759-5 (Version None)
Quarter: 2009Q2

REPORT INFORMATION
  Report Type: 
  Country: None (occurrence: None)
  Receive Date: 20090624
  Receipt Date: 20090612
  Transmission Date: 20091009
  Serious: Yes (Death)
  Sender: FDA-Public Use
  Company Number: ADE# 09-248DPR

PATIENT
  Age: 77 Year
  Sex: Male

DRUGS (3)
  1. DIGOXIN [Suspect]
     Indication: CARDIOMYOPATHY
     Dosage: ONE TABLET DAILY
  2. FUROSEMIDE [Concomitant]
  3. LISINOPRIL [Concomitant]

REACTIONS (7)
  - ABASIA [None]
  - AORTIC DISORDER [None]
  - DECREASED APPETITE [None]
  - GAIT DISTURBANCE [None]
  - HYPOTENSION [None]
  - NAUSEA [None]
  - VOMITING [None]
